FAERS Safety Report 6137049-7 (Version None)
Quarter: 2009Q1

REPORT INFORMATION
  Report Type: 
  Country: None (occurrence: None)
  Receive Date: 20090330
  Receipt Date: 20090318
  Transmission Date: 20090719
  Serious: Yes (Hospitalization)
  Sender: FDA-Public Use
  Company Number: US-WYE-H08648709

PATIENT
  Age: 40 Year
  Sex: Male

DRUGS (1)
  1. ADVIL [Suspect]
     Indication: MYALGIA
     Dosage: UNKNOWN
     Route: 048

REACTIONS (4)
  - IMMUNE SYSTEM DISORDER [None]
  - MUSCLE TWITCHING [None]
  - OVERDOSE [None]
  - SWELLING [None]
